FAERS Safety Report 4268986-6 (Version None)
Quarter: 2004Q1

REPORT INFORMATION
  Report Type: 
  Country: None (occurrence: None)
  Receive Date: 20040109
  Receipt Date: 20031229
  Transmission Date: 20041129
  Serious: Yes (Death)
  Sender: FDA-Public Use
  Company Number: US-JNJFOC-20031205602

PATIENT
  Age: 19 Year
  Sex: Female

DRUGS (2)
  1. ORTHO EVRA [Suspect]
     Indication: CONTRACEPTION
     Dosage: 1 DOSE (S), 3 IN 4 WEEK, TRANSDERMAL
     Route: 062
  2. ORAL CONTRACEPTIVE (ORAL CONTRACEPTIVE NOS) UNSPECIFIED [Suspect]
     Indication: CONTRACEPTION

REACTIONS (5)
  - ABDOMINAL PAIN [None]
  - DEHYDRATION [None]
  - HEADACHE [None]
  - TREMOR [None]
  - VOMITING [None]
